FAERS Safety Report 18473096 (Version 1)
Quarter: 2020Q4

REPORT INFORMATION
  Report Type: Spontaneous
  Country: DE (occurrence: DE)
  Receive Date: 20201106
  Receipt Date: 20201106
  Transmission Date: 20210114
  Serious: Yes (Other)
  Sender: FDA-Public Use
  Company Number: DE-MYLANLABS-2020M1092353

PATIENT
  Age: 66 Year
  Sex: Female
  Weight: 73 kg

DRUGS (3)
  1. HULIO [Suspect]
     Active Substance: ADALIMUMAB-FKJP
     Indication: SPONDYLITIS
     Dosage: 40 MILLIGRAM, Q2W
     Route: 058
     Dates: start: 20200220, end: 20200716
  2. METHOTREXATE (METHOTREXATE SODIUM) [Concomitant]
     Active Substance: METHOTREXATE SODIUM
     Indication: SPONDYLITIS
     Dosage: 1 DOSAGE FORM, QW
     Route: 058
     Dates: start: 2014, end: 202008
  3. MST                                /00036302/ [Concomitant]
     Active Substance: MORPHINE SULFATE
     Indication: FIBROMYALGIA
     Dosage: UNK (1-0-2)
     Route: 048
     Dates: start: 20171213

REACTIONS (2)
  - Hypothyroidism [Unknown]
  - Thyroiditis subacute [Not Recovered/Not Resolved]

NARRATIVE: CASE EVENT DATE: 20200828
